FAERS Safety Report 9759569 (Version 1)
Quarter: 2013Q4

REPORT INFORMATION
  Report Type: Spontaneous
  Country: US (occurrence: US)
  Receive Date: 20131216
  Receipt Date: 20131216
  Transmission Date: 20140711
  Serious: No
  Sender: FDA-Public Use
  Company Number: US-GILEAD-2010-0028203

PATIENT
  Sex: Female
  Weight: 59.42 kg

DRUGS (12)
  1. LETAIRIS [Suspect]
     Indication: PULMONARY ARTERIAL HYPERTENSION
     Route: 048
     Dates: start: 20090408
  2. LASIX [Concomitant]
  3. LOPRESSOR [Concomitant]
  4. ADCIRCA [Concomitant]
  5. TYLENOL [Concomitant]
  6. LANTUS [Concomitant]
  7. IRON [Concomitant]
  8. CENTRUM [Concomitant]
  9. ZOCOR [Concomitant]
  10. COUMADIN [Concomitant]
  11. DIOVAN [Concomitant]
  12. OMEPRAZOLE [Concomitant]

REACTIONS (1)
  - Hypotension [Unknown]
